FAERS Safety Report 9147539 (Version 1)
Quarter: 2013Q1

REPORT INFORMATION
  Report Type: Spontaneous
  Country: RS (occurrence: RS)
  Receive Date: 20130307
  Receipt Date: 20130307
  Transmission Date: 20140127
  Serious: Yes (Hospitalization)
  Sender: FDA-Public Use
  Company Number: RS-ROXANE LABORATORIES, INC.-2013-RO-00329RO

PATIENT
  Age: 63 Year
  Sex: Male

DRUGS (4)
  1. LITHIUM CARBONATE [Suspect]
     Dosage: 900 MG
  2. METFORMIN [Suspect]
     Indication: DIABETES MELLITUS
     Dosage: 2000 MG
  3. MAPROTILINE [Suspect]
     Dosage: 125 MG
  4. HALOPERIDOL [Suspect]
     Dosage: 4 MG

REACTIONS (2)
  - Toxicity to various agents [Recovered/Resolved]
  - Renal failure [Recovered/Resolved]
